FAERS Safety Report 4699426-0 (Version None)
Quarter: 2005Q2

REPORT INFORMATION
  Report Type: 
  Country: None (occurrence: None)
  Receive Date: 20050622
  Receipt Date: 20050606
  Transmission Date: 20051028
  Serious: Yes (Hospitalization)
  Sender: FDA-Public Use
  Company Number: ACO_0171_2005

PATIENT
  Age: 8 Month

DRUGS (1)
  1. SIRDALUD [Suspect]
     Indication: ACCIDENTAL OVERDOSE
     Dosage: 32 MG ONCE PO
     Route: 048

REACTIONS (3)
  - ACCIDENTAL DRUG INTAKE BY CHILD [None]
  - BRADYCARDIA [None]
  - DEPRESSED LEVEL OF CONSCIOUSNESS [None]
